FAERS Safety Report 12765896 (Version 1)
Quarter: 2016Q3

REPORT INFORMATION
  Report Type: Spontaneous
  Country: US (occurrence: US)
  Receive Date: 20160920
  Receipt Date: 20160920
  Transmission Date: 20161109
  Serious: No
  Sender: FDA-Public Use
  Company Number: None

PATIENT
  Age: 44 Year
  Sex: Female
  Weight: 74.25 kg

DRUGS (4)
  1. HYOSCYAMINE SULFATE 0.125 [Suspect]
     Active Substance: HYOSCYAMINE SULFATE
     Indication: CLOSTRIDIUM DIFFICILE INFECTION
     Route: 048
     Dates: start: 20160914, end: 20160914
  2. AMYTRIPTALINE [Concomitant]
  3. ZOLOFT [Concomitant]
     Active Substance: SERTRALINE HYDROCHLORIDE
  4. HYOSCYAMINE SULFATE 0.125 [Suspect]
     Active Substance: HYOSCYAMINE SULFATE
     Indication: ABDOMINAL PAIN UPPER
     Route: 048
     Dates: start: 20160914, end: 20160914

REACTIONS (6)
  - Dysarthria [None]
  - Dizziness [None]
  - Somnolence [None]
  - Heart rate increased [None]
  - Condition aggravated [None]
  - Insomnia [None]

NARRATIVE: CASE EVENT DATE: 20160914
